APPROVED DRUG PRODUCT: VYBRIQUE
Active Ingredient: SILDENAFIL CITRATE
Strength: EQ 75MG BASE
Dosage Form/Route: FILM;ORAL
Application: N210858 | Product #003
Applicant: IBSA INSTITUT BIOCHIMIQUE SA
Approved: Dec 16, 2025 | RLD: Yes | RS: No | Type: RX

PATENTS:
Patent 11123287 | Expires: Dec 16, 2033

EXCLUSIVITY:
Code: NP | Date: Dec 16, 2028